FAERS Safety Report 15107258 (Version 4)
Quarter: 2019Q3

REPORT INFORMATION
  Report Type: Spontaneous
  Country: JP (occurrence: JP)
  Receive Date: 20180704
  Receipt Date: 20190722
  Transmission Date: 20191004
  Serious: Yes (Hospitalization, Other)
  Sender: FDA-Public Use
  Company Number: JP-GLAXOSMITHKLINE-JP2018JPN106940

PATIENT
  Age: 17 Year
  Sex: Male

DRUGS (2)
  1. LAMICTAL [Suspect]
     Active Substance: LAMOTRIGINE
     Indication: BIPOLAR DISORDER
     Dosage: 25 MG, 1D
     Route: 048
     Dates: start: 20180521, end: 20180603
  2. LAMICTAL [Suspect]
     Active Substance: LAMOTRIGINE
     Dosage: 50 MG, 1D
     Route: 048
     Dates: start: 20180604, end: 20180611

REACTIONS (16)
  - Rash [Recovering/Resolving]
  - Blister [Unknown]
  - Drug eruption [Recovering/Resolving]
  - Pyrexia [Recovering/Resolving]
  - Ocular hyperaemia [Unknown]
  - Rash papular [Unknown]
  - Mucosal disorder [Unknown]
  - Erythema of eyelid [Unknown]
  - Generalised erythema [Unknown]
  - Mucosa vesicle [Recovering/Resolving]
  - Rash macular [Unknown]
  - Ulcer [Unknown]
  - Toxic epidermal necrolysis [Recovered/Resolved]
  - Lip erosion [Unknown]
  - Lip injury [Unknown]
  - Oral mucosa erosion [Unknown]

NARRATIVE: CASE EVENT DATE: 2018
